FAERS Safety Report 5738610-1 (Version None)
Quarter: 2008Q2

REPORT INFORMATION
  Report Type: 
  Country: None (occurrence: None)
  Receive Date: 20080515
  Receipt Date: 20080411
  Transmission Date: 20081010
  Serious: No
  Sender: FDA-Public Use
  Company Number: US-BAYER-200820478NA

PATIENT
  Sex: Male

DRUGS (1)
  1. NEXAVAR [Suspect]
     Indication: NEUROENDOCRINE TUMOUR
     Route: 048

REACTIONS (2)
  - FATIGUE [None]
  - NEUROENDOCRINE TUMOUR [None]
